FAERS Safety Report 17021407 (Version 4)
Quarter: 2020Q2

REPORT INFORMATION
  Report Type: Spontaneous
  Country: US (occurrence: US)
  Receive Date: 20191112
  Receipt Date: 20200413
  Transmission Date: 20200713
  Serious: Yes (Other)
  Sender: FDA-Public Use
  Company Number: US-PFIZER INC-2019480943

PATIENT
  Age: 74 Year
  Sex: Male

DRUGS (5)
  1. INSPRA [Suspect]
     Active Substance: EPLERENONE
     Indication: BLOOD PRESSURE ABNORMAL
     Dosage: 50 MG, TWICE A DAY
     Route: 048
  2. INSPRA [Suspect]
     Active Substance: EPLERENONE
     Indication: SECONDARY HYPERTENSION
     Dosage: 50 MG, ONCE A DAY
     Route: 048
  3. AMLODIPINE [Concomitant]
     Active Substance: AMLODIPINE BESYLATE
     Indication: HYPERTENSION
     Dosage: 5 MG, 2X/DAY
  4. DOXAZOSIN [Concomitant]
     Active Substance: DOXAZOSIN MESYLATE
     Indication: HYPERTENSION
     Dosage: 1 MG, 2X/DAY
  5. INSPRA [Suspect]
     Active Substance: EPLERENONE
     Indication: HYPERALDOSTERONISM

REACTIONS (5)
  - Malaise [Unknown]
  - Blood pressure systolic decreased [Recovered/Resolved]
  - Hyperkalaemia [Recovered/Resolved]
  - Hypotension [Recovered/Resolved]
  - Off label use [Unknown]
